FAERS Safety Report 25775479 (Version 2)
Quarter: 2025Q4

REPORT INFORMATION
  Report Type: Spontaneous
  Country: US (occurrence: US)
  Receive Date: 20250909
  Receipt Date: 20251008
  Transmission Date: 20260117
  Serious: No
  Sender: BRISTOL-MYERS SQUIBB COMPANY
  Company Number: US-BRISTOL-MYERS SQUIBB COMPANY-2025-123938

PATIENT
  Age: 72 Year
  Sex: Female

DRUGS (2)
  1. REVLIMID [Suspect]
     Active Substance: LENALIDOMIDE
     Indication: Plasma cell myeloma
     Dosage: DAILY FOR 14 DAYS, THEN 7 DAYS OFF
  2. REVLIMID [Suspect]
     Active Substance: LENALIDOMIDE
     Dosage: FREQUENCY: DAILY FOR 14 DAYS

REACTIONS (5)
  - Constipation [Unknown]
  - Diarrhoea [Unknown]
  - Hypoaesthesia [Unknown]
  - Ocular hyperaemia [Unknown]
  - Infection [Unknown]

NARRATIVE: CASE EVENT DATE: 20250908
